FAERS Safety Report 17783000 (Version 2)
Quarter: 2020Q2

REPORT INFORMATION
  Report Type: Spontaneous
  Country: CA (occurrence: CA)
  Receive Date: 20200514
  Receipt Date: 20200622
  Transmission Date: 20200714
  Serious: Yes (Other)
  Sender: FDA-Public Use
  Company Number: CA-AMGEN-CANSP2020077162

PATIENT
  Age: 57 Year
  Sex: Female

DRUGS (1)
  1. ENBREL [Suspect]
     Active Substance: ETANERCEPT
     Indication: PSORIATIC ARTHROPATHY
     Dosage: 50 MG, WEEKLY
     Route: 065
     Dates: end: 20191022

REACTIONS (5)
  - Synovitis [Unknown]
  - Nodal osteoarthritis [Unknown]
  - Pleuritic pain [Unknown]
  - Drug ineffective [Unknown]
  - Finger deformity [Unknown]
